FAERS Safety Report 8553006-5 (Version None)
Quarter: 2012Q3

REPORT INFORMATION
  Report Type: 
  Country: None (occurrence: None)
  Receive Date: 20120731
  Receipt Date: 20120720
  Transmission Date: 20120928
  Serious: Yes (Other)
  Sender: FDA-Public Use
  Company Number: AU-SANOFI-AVENTIS-2012SA051098

PATIENT
  Sex: Male

DRUGS (1)
  1. ENOXAPARIN SODIUM [Suspect]
     Route: 064

REACTIONS (3)
  - MEDICATION ERROR [None]
  - MATERNAL EXPOSURE DURING PREGNANCY [None]
  - AUTISM [None]
